FAERS Safety Report 17622244 (Version 1)
Quarter: 2020Q2

REPORT INFORMATION
  Report Type: Report from Study
  Country: IT (occurrence: IT)
  Receive Date: 20200403
  Receipt Date: 20200403
  Transmission Date: 20200713
  Serious: Yes (Other)
  Sender: FDA-Public Use
  Company Number: IT-PFIZER INC-2020138230

PATIENT
  Age: 53 Year
  Sex: Female

DRUGS (6)
  1. XANAX [Suspect]
     Active Substance: ALPRAZOLAM
     Dosage: 40 ML, SINGLE
     Route: 048
     Dates: start: 20200211, end: 20200211
  2. KEPPRA [Concomitant]
     Active Substance: LEVETIRACETAM
  3. CIPRALEX [Concomitant]
     Active Substance: ESCITALOPRAM OXALATE
  4. SEQUACOR [Concomitant]
     Active Substance: BISOPROLOL
  5. COUMADIN [Concomitant]
     Active Substance: WARFARIN SODIUM
  6. ZYPREXA [Concomitant]
     Active Substance: OLANZAPINE

REACTIONS (3)
  - Sopor [Unknown]
  - Toxicity to various agents [Unknown]
  - Drug abuse [Unknown]

NARRATIVE: CASE EVENT DATE: 20200211
